FAERS Safety Report 4738098-3 (Version None)
Quarter: 2005Q3

REPORT INFORMATION
  Report Type: 
  Country: None (occurrence: None)
  Receive Date: 20050809
  Receipt Date: 20050127
  Transmission Date: 20060218
  Serious: Yes (Other)
  Sender: FDA-Public Use
  Company Number: JP-BRISTOL-MYERS SQUIBB COMPANY-12860011

PATIENT
  Age: 45 Year
  Sex: Female

DRUGS (6)
  1. IFOMIDE [Suspect]
     Indication: CHONDROSARCOMA
     Route: 041
     Dates: start: 20020311, end: 20020313
  2. IFOMIDE [Suspect]
     Indication: METASTASES TO LUNG
     Route: 041
     Dates: start: 20020311, end: 20020313
  3. ONCOVIN [Suspect]
     Indication: CHONDROSARCOMA
     Route: 042
     Dates: start: 20020311
  4. ONCOVIN [Suspect]
     Indication: METASTASES TO LUNG
     Route: 042
     Dates: start: 20020311
  5. COSMEGEN [Suspect]
     Indication: CHONDROSARCOMA
     Route: 042
     Dates: start: 20020311
  6. COSMEGEN [Suspect]
     Indication: METASTASES TO LUNG
     Route: 042
     Dates: start: 20020311

REACTIONS (2)
  - ENCEPHALOPATHY [None]
  - METABOLIC ACIDOSIS [None]
